FAERS Safety Report 8010750-6 (Version None)
Quarter: 2011Q4

REPORT INFORMATION
  Report Type: 
  Country: None (occurrence: None)
  Receive Date: 20111228
  Receipt Date: 20111227
  Transmission Date: 20120403
  Serious: Yes (Hospitalization)
  Sender: FDA-Public Use
  Company Number: IT-BAYER-2011-123594

PATIENT
  Age: 84 Year
  Sex: Female

DRUGS (3)
  1. PLAVIX [Suspect]
     Indication: CEREBROVASCULAR ACCIDENT
     Dosage: 75 MG, QD
     Route: 048
     Dates: start: 20111217, end: 20111218
  2. ASPIRIN [Suspect]
     Indication: MYOCARDIAL ISCHAEMIA
     Dosage: 100 MG, QD
     Route: 048
     Dates: start: 20011218, end: 20111218
  3. ACETAMINOPHEN [Concomitant]
     Indication: PAIN
     Dosage: DAILY DOSE 1 G
     Route: 048
     Dates: start: 20111211, end: 20111218

REACTIONS (1)
  - RECTAL HAEMORRHAGE [None]
